FAERS Safety Report 25319410 (Version 1)
Quarter: 2025Q2

REPORT INFORMATION
  Report Type: Spontaneous
  Country: PL (occurrence: PL)
  Receive Date: 20250515
  Receipt Date: 20250515
  Transmission Date: 20250716
  Serious: Yes (Hospitalization, Other)
  Sender: NOVARTIS
  Company Number: PL-ROCHE-1998547

PATIENT
  Age: 53 Year
  Sex: Male
  Weight: 61 kg

DRUGS (15)
  1. CYCLOSPORINE [Suspect]
     Active Substance: CYCLOSPORINE
     Indication: Product used for unknown indication
     Route: 065
  2. CYCLOSPORINE [Suspect]
     Active Substance: CYCLOSPORINE
     Route: 065
  3. EPOETIN BETA [Suspect]
     Active Substance: ERYTHROPOIETIN
     Indication: Nephrogenic anaemia
     Dosage: 4000 IU, QW (0.33 WEEKLY)
     Route: 058
     Dates: start: 201503, end: 20170922
  4. EPOETIN BETA [Suspect]
     Active Substance: ERYTHROPOIETIN
     Indication: Chronic kidney disease
     Dosage: UNK, QW
     Route: 058
     Dates: start: 201606
  5. EPOETIN BETA [Suspect]
     Active Substance: ERYTHROPOIETIN
     Dosage: UNK, QW
     Route: 058
     Dates: start: 201611
  6. EPOETIN BETA [Suspect]
     Active Substance: ERYTHROPOIETIN
     Dosage: UNK, QW 3000 UNITS, THEN 6000 UNITS AND THEN 8000 UNITS PER WEEK.
     Route: 058
     Dates: start: 201704
  7. EPOETIN BETA [Suspect]
     Active Substance: ERYTHROPOIETIN
     Dosage: UNK, QW
     Route: 058
     Dates: start: 201708, end: 20170922
  8. METHYLPREDNISOLONE [Suspect]
     Active Substance: METHYLPREDNISOLONE
     Indication: Product used for unknown indication
     Route: 065
  9. AMLODIPINE BESYLATE [Concomitant]
     Active Substance: AMLODIPINE BESYLATE
     Indication: Hypertension
     Dosage: 10 MG, QD (1X1 TABLET)
     Route: 048
     Dates: start: 20170626
  10. RAMIPRIL [Concomitant]
     Active Substance: RAMIPRIL
     Indication: Hypertension
     Dosage: 10 MG, QD (1X1 TABLET)
     Route: 048
     Dates: start: 20120101
  11. Doxar [Concomitant]
     Indication: Hypertension
     Dosage: 2 MG, QD, 2X1 TABLET
     Route: 048
     Dates: start: 20170626
  12. BISOPROLOL FUMARATE [Concomitant]
     Active Substance: BISOPROLOL FUMARATE
     Indication: Hypertension
     Dosage: 25 MG, QD (2X1 TABLETFREQUENCY TEXT:EVERYDAY)
     Route: 048
     Dates: start: 20160831
  13. ATORVASTATIN [Concomitant]
     Active Substance: ATORVASTATIN
     Indication: Hypercholesterolaemia
     Dosage: 20 MG, QD 1X1 TABLETFREQUENCY TEXT:EVERYDAY)
     Route: 048
     Dates: start: 20170626
  14. PANTOPRAZOLE [Concomitant]
     Active Substance: PANTOPRAZOLE
     Indication: Dyspepsia
     Dosage: 20 MG, Q48H, 1X1 TABLET
     Route: 048
     Dates: start: 20131209
  15. FOLIC ACID [Concomitant]
     Active Substance: FOLIC ACID
     Indication: Chronic kidney disease
     Dosage: 15 MG, QD (1X1 TABLETFREQUENCY TEXT:EVERYDAY)
     Route: 048
     Dates: start: 20120101

REACTIONS (9)
  - Aplasia pure red cell [Not Recovered/Not Resolved]
  - Pneumonitis [Recovered/Resolved]
  - Anti-erythropoietin antibody positive [Unknown]
  - Infectious pleural effusion [Recovered/Resolved]
  - Arteriovenous fistula site infection [Recovered/Resolved]
  - Sepsis [Recovered/Resolved]
  - Blood glucose increased [Unknown]
  - Haemoglobin decreased [Not Recovered/Not Resolved]
  - Drug ineffective [Unknown]

NARRATIVE: CASE EVENT DATE: 20160701
